FAERS Safety Report 7892569-X (Version None)
Quarter: 2011Q4

REPORT INFORMATION
  Report Type: 
  Country: None (occurrence: None)
  Receive Date: 20111102
  Receipt Date: 20111018
  Transmission Date: 20120403
  Serious: Yes (Hospitalization)
  Sender: FDA-Public Use
  Company Number: MIN-00766

PATIENT
  Age: 72 Year
  Sex: Female

DRUGS (2)
  1. CIPRO [Suspect]
     Indication: CHOLECYSTITIS
     Dosage: INTRAVENOUS
     Route: 042
  2. MINOCYCLINE HCL [Suspect]
     Indication: SCRUB TYPHUS
     Dosage: 100 MG EVERY 12 HOURS, ORAL
     Route: 048

REACTIONS (2)
  - MUSCULAR WEAKNESS [None]
  - MONONEUROPATHY MULTIPLEX [None]
